FAERS Safety Report 14137526 (Version 1)
Quarter: 2017Q4

REPORT INFORMATION
  Report Type: Spontaneous
  Country: DE (occurrence: DE)
  Receive Date: 20171027
  Receipt Date: 20171027
  Transmission Date: 20180321
  Serious: Yes (Other)
  Sender: FDA-Public Use
  Company Number: DE-TEVA-818068GER

PATIENT
  Sex: Female

DRUGS (1)
  1. DIAZEPAM RATIOPHARM [Suspect]
     Active Substance: DIAZEPAM
     Route: 065

REACTIONS (1)
  - Deafness [Unknown]
